FAERS Safety Report 20184779 (Version 1)
Quarter: 2021Q4

REPORT INFORMATION
  Report Type: Spontaneous
  Country: US (occurrence: US)
  Receive Date: 20211214
  Receipt Date: 20211214
  Transmission Date: 20220303
  Serious: No
  Sender: FDA-Public Use
  Company Number: US-NOVOPROD-780210

PATIENT
  Age: 71 Year
  Sex: Female

DRUGS (2)
  1. NOVOLIN N [Suspect]
     Active Substance: INSULIN HUMAN
     Dosage: UNK(VIAL, SLIDING SCALE), DOSE INCREASED
     Route: 058
     Dates: start: 20180101
  2. NOVOLIN N [Suspect]
     Active Substance: INSULIN HUMAN
     Indication: Product used for unknown indication
     Dosage: UNK(VIAL, SLIDING SCALE)
     Route: 058
     Dates: start: 20180101

REACTIONS (4)
  - Dizziness [Recovering/Resolving]
  - Blood glucose increased [Recovering/Resolving]
  - Product quality issue [Recovering/Resolving]
  - Drug ineffective [Recovering/Resolving]

NARRATIVE: CASE EVENT DATE: 20201127
